FAERS Safety Report 6816316-5 (Version None)
Quarter: 2010Q3

REPORT INFORMATION
  Report Type: 
  Country: None (occurrence: None)
  Receive Date: 20100705
  Receipt Date: 20100621
  Transmission Date: 20110219
  Serious: Yes (Hospitalization)
  Sender: FDA-Public Use
  Company Number: PHHO2010BR05275

PATIENT
  Sex: Male

DRUGS (3)
  1. CYCLOSPORINE [Suspect]
     Indication: RENAL TRANSPLANT
     Dosage: 150 MG, QD
     Route: 048
     Dates: start: 20071116
  2. MYCOPHENOLATE MOFETIL [Concomitant]
     Dosage: UNK
     Dates: start: 20070512
  3. PREDNISONE [Concomitant]
     Dosage: UNK
     Dates: start: 20070514

REACTIONS (5)
  - BACTERAEMIA [None]
  - BONE OPERATION [None]
  - DIABETIC FOOT INFECTION [None]
  - FOOT DEFORMITY [None]
  - PYREXIA [None]
